FAERS Safety Report 9027252 (Version 1)
Quarter: 2013Q1

REPORT INFORMATION
  Report Type: Spontaneous
  Country: KR (occurrence: KR)
  Receive Date: 20130123
  Receipt Date: 20130123
  Transmission Date: 20140127
  Serious: Yes (Hospitalization)
  Sender: FDA-Public Use
  Company Number: PHHY2013KR005427

PATIENT
  Age: 5 Month
  Sex: Female

DRUGS (2)
  1. ACETYLSALICYLIC ACID [Suspect]
     Indication: KAWASAKI^S DISEASE
     Dosage: 25 MG, QD
  2. IMMUNE GLOBULIN [Concomitant]
     Indication: KAWASAKI^S DISEASE

REACTIONS (7)
  - Reye^s syndrome [Unknown]
  - Hyperammonaemia [Recovering/Resolving]
  - Vomiting [Unknown]
  - Musculoskeletal stiffness [Recovering/Resolving]
  - Weight bearing difficulty [Recovering/Resolving]
  - Asthenia [Recovering/Resolving]
  - Liver palpable subcostal [Unknown]
